FAERS Safety Report 8479714-2 (Version None)
Quarter: 2012Q2

REPORT INFORMATION
  Report Type: 
  Country: None (occurrence: None)
  Receive Date: 20120629
  Receipt Date: 20120618
  Transmission Date: 20120825
  Serious: Yes (Other)
  Sender: FDA-Public Use
  Company Number: JP-VERTEX PHARMACEUTICALS INC.-AE-2012-009266

PATIENT
  Age: 54 Year
  Sex: Female

DRUGS (6)
  1. RIBAVIRIN [Concomitant]
     Route: 048
     Dates: start: 20120416, end: 20120430
  2. PEGINTERFERON ALFA-2B [Concomitant]
     Route: 058
     Dates: start: 20120416
  3. TELAVIC (TELAPREVIR) [Suspect]
     Route: 048
     Dates: start: 20120423
  4. RIBAVIRIN [Concomitant]
     Route: 048
     Dates: start: 20120501
  5. TELAVIC (TELAPREVIR) [Suspect]
     Indication: HEPATITIS C
     Route: 048
     Dates: start: 20120416, end: 20120422
  6. PRIMPERAN TAB [Concomitant]
     Route: 048
     Dates: start: 20120426

REACTIONS (1)
  - RENAL IMPAIRMENT [None]
